FAERS Safety Report 4877227-8 (Version None)
Quarter: 2005Q4

REPORT INFORMATION
  Report Type: 
  Country: None (occurrence: None)
  Receive Date: 20051206
  Receipt Date: 20050830
  Transmission Date: 20060501
  Serious: No
  Sender: FDA-Public Use
  Company Number: USA050597289

PATIENT
  Age: 62 Year
  Sex: Female

DRUGS (10)
  1. CYMBALTA [Suspect]
     Indication: ANXIETY
     Dosage: 30 MG/2 DAY
     Dates: start: 20050301
  2. KLONOPIN [Concomitant]
  3. ASPIRIN [Concomitant]
  4. VITAMINS [Concomitant]
  5. ZANTAC [Concomitant]
  6. CALCIUM GLUCONATE [Concomitant]
  7. MAGNESIUM [Concomitant]
  8. EFFEXOR [Concomitant]
  9. CHOLESTEROL MEDICATION [Concomitant]
  10. BLOOD PRESSURE MEDICATION [Concomitant]

REACTIONS (9)
  - DIARRHOEA [None]
  - DIZZINESS [None]
  - FATIGUE [None]
  - FEELING HOT [None]
  - MYALGIA [None]
  - PAIN [None]
  - SENSATION OF HEAVINESS [None]
  - SOMNOLENCE [None]
  - SWELLING [None]
